FAERS Safety Report 18896085 (Version 3)
Quarter: 2021Q2

REPORT INFORMATION
  Report Type: Spontaneous
  Country: US (occurrence: US)
  Receive Date: 20210215
  Receipt Date: 20210628
  Transmission Date: 20210717
  Serious: Yes (Death, Hospitalization, Other)
  Sender: FDA-Public Use
  Company Number: US-ELI_LILLY_AND_COMPANY-US202102003243

PATIENT
  Age: 84 Year
  Sex: Male
  Weight: 110.5 kg

DRUGS (1)
  1. BAMLANIVIMAB 700MG [Suspect]
     Active Substance: BAMLANIVIMAB
     Indication: COVID-19
     Dosage: 700 MG, SINGLE
     Route: 041
     Dates: start: 20210115, end: 20210115

REACTIONS (8)
  - Constipation [Unknown]
  - Cardiac failure congestive [Unknown]
  - Acute respiratory failure [Unknown]
  - Death [Fatal]
  - Coronary artery disease [Unknown]
  - Chronic respiratory failure [Unknown]
  - COVID-19 pneumonia [Unknown]
  - Acute kidney injury [Unknown]

NARRATIVE: CASE EVENT DATE: 20210116
